FAERS Safety Report 10231491 (Version 1)
Quarter: 2014Q2

REPORT INFORMATION
  Report Type: Spontaneous
  Country: US (occurrence: US)
  Receive Date: 20140611
  Receipt Date: 20140611
  Transmission Date: 20141212
  Serious: No
  Sender: FDA-Public Use
  Company Number: US-TEVA-486319USA

PATIENT
  Age: 50 Year
  Sex: Female
  Weight: 57.66 kg

DRUGS (3)
  1. NUVIGIL [Suspect]
     Indication: PSORIATIC ARTHROPATHY
     Route: 048
     Dates: start: 20140530
  2. NUVIGIL [Suspect]
     Indication: FATIGUE
  3. ENBREL [Concomitant]
     Indication: PSORIATIC ARTHROPATHY

REACTIONS (3)
  - Nausea [Not Recovered/Not Resolved]
  - Drug effect decreased [Not Recovered/Not Resolved]
  - Off label use [Unknown]
